FAERS Safety Report 4265963-6 (Version None)
Quarter: 2004Q1

REPORT INFORMATION
  Report Type: 
  Country: None (occurrence: None)
  Receive Date: 20040106
  Receipt Date: 20031224
  Transmission Date: 20041129
  Serious: No
  Sender: FDA-Public Use
  Company Number: 03P-062-0245766-00

PATIENT
  Sex: Female

DRUGS (1)
  1. VALPROATE SODIUM [Suspect]
     Dosage: 1000 MG, 1 IN 1 D, ORAL
     Route: 048

REACTIONS (2)
  - PANCREATIC CYST [None]
  - PANCREATITIS [None]
